FAERS Safety Report 9397275 (Version 2)
Quarter: 2013Q4

REPORT INFORMATION
  Report Type: Spontaneous
  Country: GB (occurrence: GB)
  Receive Date: 20130712
  Receipt Date: 20131203
  Transmission Date: 20140711
  Serious: Yes (Other)
  Sender: FDA-Public Use
  Company Number: GB-BAYER-2013-083146

PATIENT
  Age: 31 Year
  Sex: Female
  Weight: 47 kg

DRUGS (3)
  1. YASMIN, FILM-COATED TABLETS, 0.03 MG/3 MG [Suspect]
     Indication: ACNE
     Dosage: 1 DF, QD
     Route: 048
     Dates: start: 20040101, end: 20130201
  2. YASMIN, FILM-COATED TABLETS, 0.03 MG/3 MG [Suspect]
     Indication: ABDOMINAL PAIN
  3. YASMIN, FILM-COATED TABLETS, 0.03 MG/3 MG [Suspect]
     Indication: MENSTRUATION IRREGULAR

REACTIONS (7)
  - Acne [Not Recovered/Not Resolved]
  - Dandruff [Not Recovered/Not Resolved]
  - Alopecia [Not Recovered/Not Resolved]
  - Pruritus [Not Recovered/Not Resolved]
  - Mood swings [Not Recovered/Not Resolved]
  - Seborrhoea [Not Recovered/Not Resolved]
  - Withdrawal syndrome [Not Recovered/Not Resolved]
